FAERS Safety Report 6393026-2 (Version None)
Quarter: 2009Q4

REPORT INFORMATION
  Report Type: 
  Country: None (occurrence: None)
  Receive Date: 20091008
  Receipt Date: 20071119
  Transmission Date: 20100525
  Serious: Yes (Hospitalization, Other)
  Sender: FDA-Public Use
  Company Number: US-ASTRAZENECA-2007UW01808

PATIENT
  Age: 15407 Day
  Sex: Female
  Weight: 143.8 kg

DRUGS (2)
  1. SEROQUEL [Suspect]
     Indication: SLEEP DISORDER
     Route: 048
     Dates: end: 20040901
  2. DARVOCET [Concomitant]
     Dates: start: 20030422

REACTIONS (7)
  - CHEST PAIN [None]
  - DIABETES MELLITUS [None]
  - DIABETES MELLITUS INADEQUATE CONTROL [None]
  - DIABETIC NEUROPATHY [None]
  - GLUCOSE TOLERANCE IMPAIRED [None]
  - MONONEURITIS [None]
  - OBESITY [None]
